FAERS Safety Report 8069442-X (Version None)
Quarter: 2012Q1

REPORT INFORMATION
  Report Type: 
  Country: None (occurrence: None)
  Receive Date: 20120119
  Receipt Date: 20120105
  Transmission Date: 20120608
  Serious: Yes (Other)
  Sender: FDA-Public Use
  Company Number: JPI-P-019169

PATIENT
  Age: 61 Year
  Sex: Male
  Weight: 120.2032 kg

DRUGS (3)
  1. XYREM [Suspect]
     Indication: CATAPLEXY
     Dosage: ORAL; 9 GM (4.5 GM, 2 IN 1 D) ORAL
     Route: 048
     Dates: start: 20111031
  2. XYREM [Suspect]
     Indication: CATAPLEXY
     Dosage: ORAL; 9 GM (4.5 GM, 2 IN 1 D) ORAL
     Route: 048
     Dates: start: 20110101
  3. MULTIPLE UNSPECIFIED MEDICATION [Concomitant]

REACTIONS (1)
  - NON-HODGKIN'S LYMPHOMA [None]
